FAERS Safety Report 22246965 (Version 1)
Quarter: 2023Q2

REPORT INFORMATION
  Report Type: Report from Study
  Country: GB (occurrence: GB)
  Receive Date: 20230424
  Receipt Date: 20230424
  Transmission Date: 20230722
  Serious: Yes (Hospitalization)
  Sender: FDA-Public Use
  Company Number: GB-TEVA-2023-GB-2877707

PATIENT
  Age: 30 Year
  Sex: Male
  Weight: 88 kg

DRUGS (3)
  1. PACLITAXEL [Suspect]
     Active Substance: PACLITAXEL
     Indication: Anal cancer
     Dosage: 80 MILLIGRAM,^SQ, METER, DAYS 1, 8, AND 15 OF EACH , 28-DAY CYCLE
     Route: 042
  2. RETIFANLIMAB [Suspect]
     Active Substance: RETIFANLIMAB
     Indication: Anal cancer
     Route: 065
     Dates: start: 20230119, end: 20230222
  3. CARBOPLATIN [Suspect]
     Active Substance: CARBOPLATIN
     Indication: Anal cancer
     Dosage: MILLIGRAMISQ. METER, AUC 5, DAY 1 OF EACH  28-DAY CYCLE;
     Route: 042

REACTIONS (1)
  - Wound infection [Recovered/Resolved with Sequelae]

NARRATIVE: CASE EVENT DATE: 20230215
